FAERS Safety Report 7612313-0 (Version None)
Quarter: 2011Q3

REPORT INFORMATION
  Report Type: 
  Country: None (occurrence: None)
  Receive Date: 20110715
  Receipt Date: 20110706
  Transmission Date: 20111222
  Serious: Yes (Other)
  Sender: FDA-Public Use
  Company Number: PHHY2011US37634

PATIENT
  Sex: Female
  Weight: 65.306 kg

DRUGS (5)
  1. CYTOMEL [Concomitant]
     Dosage: 0.25 DF, WEEKLY
  2. TOBI [Suspect]
     Indication: BRONCHIECTASIS
     Dosage: 300 MG, BID
     Dates: start: 20110322, end: 20110418
  3. TOBI [Suspect]
     Dosage: 300 MG Q.12 HOURS, 28 DAY ON,28 DAY OFF
  4. BACTRIM [Concomitant]
     Dosage: 1/4 DOSE OF 1 TSP BID FOR 7 DAYS
  5. TOBI [Suspect]
     Indication: PSEUDOMONAS INFECTION
     Dosage: 300 MG, BID
     Dates: end: 20110523

REACTIONS (25)
  - NERVOUS SYSTEM DISORDER [None]
  - TREMOR [None]
  - PRODUCTIVE COUGH [None]
  - DYSPHEMIA [None]
  - MUSCLE SPASMS [None]
  - DECREASED APPETITE [None]
  - WEIGHT DECREASED [None]
  - ASTHENIA [None]
  - MYOCLONUS [None]
  - COUGH [None]
  - HAEMOPTYSIS [None]
  - CHEST DISCOMFORT [None]
  - BODY TEMPERATURE INCREASED [None]
  - CREPITATIONS [None]
  - CHILLS [None]
  - INTERSTITIAL LUNG DISEASE [None]
  - CONDITION AGGRAVATED [None]
  - THROAT TIGHTNESS [None]
  - ANXIETY [None]
  - DYSPNOEA [None]
  - NAUSEA [None]
  - FIBROSIS [None]
  - FATIGUE [None]
  - VOMITING [None]
  - DIARRHOEA [None]
